FAERS Safety Report 17610330 (Version 1)
Quarter: 2020Q2

REPORT INFORMATION
  Report Type: Spontaneous
  Country: DE (occurrence: DE)
  Receive Date: 20200401
  Receipt Date: 20200401
  Transmission Date: 20200713
  Serious: Yes (Other)
  Sender: FDA-Public Use
  Company Number: DE-BAYER-2020-050026

PATIENT
  Age: 39 Year
  Sex: Male
  Weight: 75 kg

DRUGS (3)
  1. GADOVIST [Suspect]
     Active Substance: GADOBUTROL
     Indication: MAGNETIC RESONANCE IMAGING BRAIN
     Dosage: 7 ML, ONCE (2 X MRI WITHIN 2 DAYS)
     Route: 042
     Dates: start: 20160707, end: 20160707
  2. GADOVIST [Suspect]
     Active Substance: GADOBUTROL
     Indication: MAGNETIC RESONANCE IMAGING SPINAL
     Dosage: 7 ML, ONCE (2 X MRI WITHIN 2 DAYS)
     Route: 042
     Dates: start: 20160708, end: 20160708
  3. GADOVIST [Suspect]
     Active Substance: GADOBUTROL
     Indication: INFLAMMATION

REACTIONS (33)
  - Muscle atrophy [Not Recovered/Not Resolved]
  - Muscle contractions involuntary [Not Recovered/Not Resolved]
  - Visual impairment [Not Recovered/Not Resolved]
  - Pain [Not Recovered/Not Resolved]
  - Muscle twitching [Not Recovered/Not Resolved]
  - Pain [Unknown]
  - Impaired quality of life [Unknown]
  - Dyspnoea [Recovering/Resolving]
  - Myosclerosis [Not Recovered/Not Resolved]
  - Gait disturbance [Unknown]
  - Dysgeusia [Recovering/Resolving]
  - Contusion [Not Recovered/Not Resolved]
  - Memory impairment [Not Recovered/Not Resolved]
  - Dry eye [Not Recovered/Not Resolved]
  - Vision blurred [Not Recovered/Not Resolved]
  - Hyperhidrosis [Recovering/Resolving]
  - Burning sensation [Not Recovered/Not Resolved]
  - Sleep disorder [Recovering/Resolving]
  - Eye irritation [Not Recovered/Not Resolved]
  - Diplopia [Not Recovered/Not Resolved]
  - Dysphagia [Recovering/Resolving]
  - Nervous system disorder [Not Recovered/Not Resolved]
  - Skin atrophy [Recovering/Resolving]
  - Muscle discomfort [Not Recovered/Not Resolved]
  - Alopecia [Recovering/Resolving]
  - Dark circles under eyes [Recovering/Resolving]
  - Impaired work ability [Unknown]
  - Rash macular [Not Recovered/Not Resolved]
  - Tinnitus [Recovering/Resolving]
  - Muscular weakness [Not Recovered/Not Resolved]
  - Dizziness [Recovering/Resolving]
  - Adverse event [Unknown]
  - Muscle strength abnormal [Not Recovered/Not Resolved]

NARRATIVE: CASE EVENT DATE: 20160715
